FAERS Safety Report 15404792 (Version 1)
Quarter: 2018Q3

REPORT INFORMATION
  Report Type: Report from Study
  Country: FR (occurrence: FR)
  Receive Date: 20180919
  Receipt Date: 20180919
  Transmission Date: 20181010
  Serious: Yes (Other)
  Sender: FDA-Public Use
  Company Number: FR-TAKEDA-2018TUS027377

PATIENT
  Age: 51 Year
  Sex: Male
  Weight: 67 kg

DRUGS (2)
  1. BRIGATINIB [Suspect]
     Active Substance: BRIGATINIB
     Dosage: 180 MG, QD
     Route: 048
     Dates: end: 20180827
  2. BRIGATINIB [Suspect]
     Active Substance: BRIGATINIB
     Indication: NON-SMALL CELL LUNG CANCER
     Dosage: 90 MG, QD
     Route: 048
     Dates: start: 20171215

REACTIONS (2)
  - Neoplasm progression [Unknown]
  - Blood creatine phosphokinase increased [Recovered/Resolved]

NARRATIVE: CASE EVENT DATE: 20180820
